FAERS Safety Report 6676759-X (Version None)
Quarter: 2010Q2

REPORT INFORMATION
  Report Type: 
  Country: None (occurrence: None)
  Receive Date: 20100409
  Receipt Date: 20100409
  Transmission Date: 20101027
  Serious: No
  Sender: FDA-Public Use
  Company Number: None

PATIENT
  Sex: Female
  Weight: 97.5234 kg

DRUGS (1)
  1. CHANTIX [Suspect]
     Indication: TOBACCO ABUSE
     Dosage: 1 MG AM , 1/2 MG PM PO
     Route: 048
     Dates: start: 20100101

REACTIONS (6)
  - DEPRESSION [None]
  - HYPERHIDROSIS [None]
  - NIGHTMARE [None]
  - PANIC DISORDER [None]
  - PSYCHOMOTOR HYPERACTIVITY [None]
  - TREMOR [None]
